FAERS Safety Report 6025345-3 (Version None)
Quarter: 2008Q4

REPORT INFORMATION
  Report Type: 
  Country: None (occurrence: None)
  Receive Date: 20081231
  Receipt Date: 20081223
  Transmission Date: 20090506
  Serious: Yes (Hospitalization, Other)
  Sender: FDA-Public Use
  Company Number: NL-MERCK-0812USA04654

PATIENT
  Age: 54 Year
  Sex: Female

DRUGS (1)
  1. DECADRON [Suspect]
     Indication: MULTIPLE MYELOMA
     Route: 065

REACTIONS (2)
  - GRAFT VERSUS HOST DISEASE [None]
  - THERAPEUTIC RESPONSE DECREASED [None]
